FAERS Safety Report 22035792 (Version 1)
Quarter: 2023Q1

REPORT INFORMATION
  Report Type: Spontaneous
  Country: JP (occurrence: JP)
  Receive Date: 20230224
  Receipt Date: 20230224
  Transmission Date: 20230417
  Serious: Yes (Other)
  Sender: FDA-Public Use
  Company Number: JP-PFIZER INC-202300076479

PATIENT
  Age: 64 Year
  Sex: Male

DRUGS (2)
  1. VFEND [Suspect]
     Active Substance: VORICONAZOLE
     Indication: Aspergillus infection
     Dosage: 600 MG
  2. VFEND [Suspect]
     Active Substance: VORICONAZOLE
     Dosage: 400 MG PER DAY FROM THE SECOND DAY

REACTIONS (2)
  - Altered state of consciousness [Unknown]
  - Drug level increased [Unknown]
